FAERS Safety Report 18894585 (Version 1)
Quarter: 2021Q1

REPORT INFORMATION
  Report Type: Report from Study
  Country: ES (occurrence: ES)
  Receive Date: 20210215
  Receipt Date: 20210215
  Transmission Date: 20210420
  Serious: Yes (Other)
  Sender: FDA-Public Use
  Company Number: ES-GLAXOSMITHKLINE-ES2021EME033684

PATIENT
  Age: 61 Year
  Sex: Female

DRUGS (2)
  1. NUCALA [Suspect]
     Active Substance: MEPOLIZUMAB
     Indication: ASTHMA
     Dosage: UNK
  2. MEPOLIZUMAB [Suspect]
     Active Substance: MEPOLIZUMAB
     Indication: ASTHMA
     Dosage: 100 MG, Z, 28 DAYS
     Route: 058
     Dates: end: 20210105

REACTIONS (2)
  - Drug ineffective [Unknown]
  - Asthmatic crisis [Recovered/Resolved]

NARRATIVE: CASE EVENT DATE: 202010
